FAERS Safety Report 5905533-4 (Version None)
Quarter: 2008Q4

REPORT INFORMATION
  Report Type: 
  Country: None (occurrence: None)
  Receive Date: 20081001
  Receipt Date: 20081001
  Transmission Date: 20090506
  Serious: No
  Sender: FDA-Public Use
  Company Number: None

PATIENT
  Age: 60 Year
  Sex: Male

DRUGS (1)
  1. GLIPIZIDE [Suspect]
     Indication: HYPOGLYCAEMIA
     Dosage: 10 MG BID PO
     Route: 048
     Dates: start: 20080301

REACTIONS (1)
  - HYPOGLYCAEMIA [None]
